FAERS Safety Report 8593002-5 (Version None)
Quarter: 2012Q3

REPORT INFORMATION
  Report Type: 
  Country: None (occurrence: None)
  Receive Date: 20120814
  Receipt Date: 20120807
  Transmission Date: 20120928
  Serious: Yes (Hospitalization)
  Sender: FDA-Public Use
  Company Number: JP-JNJFOC-20120804648

PATIENT
  Age: 40 Year
  Sex: Female

DRUGS (6)
  1. TRAMADOL HYDROCHLORIDE/ACETAMINOPHEN [Suspect]
     Indication: PAIN
     Dosage: 1 PER 1 DAY
     Route: 048
  2. MARZULENE [Concomitant]
     Dosage: 1 PER 1 DAY
     Route: 048
  3. DEPAS [Concomitant]
     Dosage: 1 PER 1 DAY
     Route: 048
  4. RABEPRAZOLE SODIUM [Concomitant]
     Dosage: 1 PER 1 DAY
     Route: 048
  5. MYONAL [Concomitant]
     Dosage: 1 PER 1 DAY
     Route: 048
  6. CELEBREX [Concomitant]
     Dosage: 1 PER 1 DAY
     Route: 048

REACTIONS (2)
  - HOSPITALISATION [None]
  - DIZZINESS [None]
